FAERS Safety Report 16265346 (Version 5)
Quarter: 2021Q2

REPORT INFORMATION
  Report Type: Report from Study
  Country: US (occurrence: US)
  Receive Date: 20190502
  Receipt Date: 20210517
  Transmission Date: 20210716
  Serious: Yes (Hospitalization)
  Sender: FDA-Public Use
  Company Number: US-ROCHE-2309688

PATIENT
  Age: 63 Year
  Sex: Male
  Weight: 75.2 kg

DRUGS (22)
  1. PROVENTIL HFA [Concomitant]
     Active Substance: ALBUTEROL SULFATE
     Indication: WHEEZING
     Dosage: INHALE 2 PUFFS AS NEEDED
  2. ZOFRAN [Concomitant]
     Active Substance: ONDANSETRON HYDROCHLORIDE
     Indication: NAUSEA
     Route: 048
  3. ATIVAN [Concomitant]
     Active Substance: LORAZEPAM
     Indication: VOMITING
  4. INDERAL [Concomitant]
     Active Substance: PROPRANOLOL HYDROCHLORIDE
     Route: 048
  5. ATEZOLIZUMAB. [Suspect]
     Active Substance: ATEZOLIZUMAB
     Indication: PROSTATE CANCER METASTATIC
     Route: 041
     Dates: start: 20190214, end: 20190328
  6. SIPULEUCEL?T [Suspect]
     Active Substance: SIPULEUCEL-T
     Indication: PROSTATE CANCER METASTATIC
     Route: 042
     Dates: start: 20181206, end: 20190110
  7. SODIUM CHLORIDE. [Concomitant]
     Active Substance: SODIUM CHLORIDE
     Route: 048
  8. CHRONULAC [Concomitant]
     Active Substance: LACTULOSE
     Route: 048
  9. MAGNESIUM CITRATE. [Concomitant]
     Active Substance: MAGNESIUM CITRATE
     Dosage: 1 BAG BY MOUTH DAILY AS NEEDED
     Route: 048
  10. MOVANTIK [Concomitant]
     Active Substance: NALOXEGOL OXALATE
     Route: 048
  11. BENICAR [Concomitant]
     Active Substance: OLMESARTAN MEDOXOMIL
     Route: 048
  12. ASPIRIN. [Concomitant]
     Active Substance: ASPIRIN
     Route: 048
  13. FLUTICASONE;SALMETEROL [Concomitant]
     Active Substance: FLUTICASONE PROPIONATE\SALMETEROL XINAFOATE
     Dosage: 1 PUFF
  14. DELTASONE [Concomitant]
     Active Substance: PREDNISONE
     Route: 048
  15. ATIVAN [Concomitant]
     Active Substance: LORAZEPAM
     Indication: NAUSEA
     Route: 048
  16. PROTONIX [Concomitant]
     Active Substance: PANTOPRAZOLE SODIUM
     Route: 048
  17. REGLAN [Concomitant]
     Active Substance: METOCLOPRAMIDE HYDROCHLORIDE
     Indication: NAUSEA
     Route: 048
  18. DELTASONE [Concomitant]
     Active Substance: PREDNISONE
     Route: 048
  19. DELTASONE [Concomitant]
     Active Substance: PREDNISONE
     Route: 048
  20. MELATONIN [Concomitant]
     Active Substance: MELATONIN
     Route: 048
  21. ZOFRAN [Concomitant]
     Active Substance: ONDANSETRON HYDROCHLORIDE
     Indication: VOMITING
  22. DELTASONE [Concomitant]
     Active Substance: PREDNISONE
     Route: 048

REACTIONS (9)
  - Hyponatraemia [Unknown]
  - Pain [Unknown]
  - Pyrexia [Unknown]
  - Abdominal pain [Unknown]
  - Blood creatinine increased [Unknown]
  - Back pain [Unknown]
  - Speech disorder [Unknown]
  - Painful respiration [Unknown]
  - Nausea [Unknown]

NARRATIVE: CASE EVENT DATE: 20190417
